FAERS Safety Report 19011336 (Version 2)
Quarter: 2021Q1

REPORT INFORMATION
  Report Type: Spontaneous
  Country: US (occurrence: US)
  Receive Date: 20210316
  Receipt Date: 20210322
  Transmission Date: 20210420
  Serious: Yes (Hospitalization, Other)
  Sender: FDA-Public Use
  Company Number: US-BAXTER-2021BAX004963

PATIENT
  Age: 17 Year
  Sex: Female

DRUGS (10)
  1. ETOPOSIDE. [Suspect]
     Active Substance: ETOPOSIDE
     Indication: HODGKIN^S DISEASE
     Dosage: GIVEN AT 50% DOSING, CYCLICAL
     Route: 065
  2. ADRIAMYCIN [Suspect]
     Active Substance: DOXORUBICIN HYDROCHLORIDE
     Indication: VANISHING BILE DUCT SYNDROME
     Dosage: GIVEN AT 50% DOSING, CYCLICAL
     Route: 065
  3. ETOPOSIDE. [Suspect]
     Active Substance: ETOPOSIDE
     Indication: VANISHING BILE DUCT SYNDROME
     Dosage: GIVEN AT 75% DOSING, MODIFIED ABVE?PC, CYCLICAL
     Route: 065
  4. CYCLOPHOSPHAMIDE FOR INJECTION, USP [Suspect]
     Active Substance: CYCLOPHOSPHAMIDE
     Indication: HODGKIN^S DISEASE
     Dosage: GIVEN AT 50% DOSING, CYCLICAL
     Route: 065
  5. ADRIAMYCIN [Suspect]
     Active Substance: DOXORUBICIN HYDROCHLORIDE
     Indication: HODGKIN^S DISEASE
     Dosage: GIVEN AT 75% DOSING, MODIFIED ABVE?PC, CYCLICAL
     Route: 065
  6. BLEOMYCIN [Suspect]
     Active Substance: BLEOMYCIN SULFATE
     Indication: VANISHING BILE DUCT SYNDROME
     Dosage: GIVEN AT 50% DOSING, CYCLICAL
     Route: 065
  7. PREDNISONE. [Suspect]
     Active Substance: PREDNISONE
     Indication: HODGKIN^S DISEASE
     Dosage: GIVEN AT 100% DOSING, MODIFIED ABVE?PC
     Route: 065
  8. BLEOMYCIN [Suspect]
     Active Substance: BLEOMYCIN SULFATE
     Indication: HODGKIN^S DISEASE
     Dosage: GIVEN AT 75% DOSING, MODIFIED ABVE?PC, CYCLICAL
     Route: 065
  9. CYCLOPHOSPHAMIDE FOR INJECTION, USP [Suspect]
     Active Substance: CYCLOPHOSPHAMIDE
     Indication: VANISHING BILE DUCT SYNDROME
     Dosage: GIVEN AT 75% DOSING, MODIFIED ABVE?PC, CYCLICAL
     Route: 065
  10. PREDNISONE. [Suspect]
     Active Substance: PREDNISONE
     Indication: VANISHING BILE DUCT SYNDROME

REACTIONS (1)
  - Toxicity to various agents [Unknown]
